FAERS Safety Report 17562311 (Version 1)
Quarter: 2020Q1

REPORT INFORMATION
  Report Type: Spontaneous
  Country: SE (occurrence: SE)
  Receive Date: 20200319
  Receipt Date: 20200319
  Transmission Date: 20200409
  Serious: Yes (Other)
  Sender: FDA-Public Use
  Company Number: SE-EXELIXIS-CABO-20028201

PATIENT
  Age: 80 Year
  Sex: Male

DRUGS (17)
  1. OMEPRAZOLE. [Concomitant]
     Active Substance: OMEPRAZOLE
  2. CABOMETYX [Suspect]
     Active Substance: CABOZANTINIB S-MALATE
     Indication: PRODUCT USED FOR UNKNOWN INDICATION
     Dosage: 40 MG, QD
     Route: 048
     Dates: start: 20190703, end: 202001
  3. DIMOR [Concomitant]
     Active Substance: LOPERAMIDE
  4. AMLODIPINE [Concomitant]
     Active Substance: AMLODIPINE BESYLATE
  5. ALVEDON [Concomitant]
     Active Substance: ACETAMINOPHEN
  6. NATRIUMBIKARBONAT [Concomitant]
     Active Substance: SODIUM BICARBONATE
  7. RESONIUM [Concomitant]
     Active Substance: SODIUM POLYSTYRENE SULFONATE
  8. ALFACALCIDOL [Concomitant]
     Active Substance: ALFACALCIDOL
  9. FELODIPINE. [Concomitant]
     Active Substance: FELODIPINE
  10. XGEVA [Concomitant]
     Active Substance: DENOSUMAB
  11. FURIX [Concomitant]
  12. SALURES [Concomitant]
     Active Substance: BENDROFLUMETHIAZIDE
  13. EPORATIO [Concomitant]
     Active Substance: ERYTHROPOIETIN
  14. BICALUTAMIDE. [Concomitant]
     Active Substance: BICALUTAMIDE
  15. SIMVASTATIN. [Concomitant]
     Active Substance: SIMVASTATIN
  16. CALCITUGG [Concomitant]
  17. PROPYLESS [Concomitant]

REACTIONS (1)
  - Renal failure [Not Recovered/Not Resolved]

NARRATIVE: CASE EVENT DATE: 2019
